FAERS Safety Report 9255447 (Version 1)
Quarter: 2013Q2

REPORT INFORMATION
  Report Type: Spontaneous
  Country: US (occurrence: US)
  Receive Date: 20130425
  Receipt Date: 20130425
  Transmission Date: 20140414
  Serious: No
  Sender: FDA-Public Use
  Company Number: US-B.I. PHARMACEUTICALS,INC./RIDGEFIELD-2013-BI-10658BP

PATIENT
  Age: 79 Year
  Sex: Female
  Weight: 68 kg

DRUGS (6)
  1. ZANTAC 150 (RANITIDINE HYDROCHLORIDE) [Suspect]
     Indication: DYSPEPSIA
     Dosage: 150 MG
     Route: 048
     Dates: start: 20130415, end: 20130415
  2. ZANTAC 150 (RANITIDINE HYDROCHLORIDE) [Suspect]
     Indication: DYSPEPSIA
  3. ASTEPRO [Concomitant]
     Indication: ENLARGED UVULA
     Route: 045
  4. XOPENEX [Concomitant]
     Indication: ASTHMA
     Route: 055
  5. AVAPRO [Concomitant]
     Indication: HYPERTENSION
  6. SINGULAIR [Concomitant]
     Indication: ASTHMA
     Route: 048
     Dates: start: 2008

REACTIONS (3)
  - Extrasystoles [Recovered/Resolved]
  - Ear discomfort [Recovered/Resolved]
  - Sensation of foreign body [Not Recovered/Not Resolved]
